FAERS Safety Report 4472047-0 (Version None)
Quarter: 2004Q4

REPORT INFORMATION
  Report Type: 
  Country: None (occurrence: None)
  Receive Date: 20041012
  Receipt Date: 20041007
  Transmission Date: 20050328
  Serious: Yes (Hospitalization, Other)
  Sender: FDA-Public Use
  Company Number: 04-10-1401

PATIENT
  Age: 61 Year
  Sex: Female

DRUGS (1)
  1. CLOZAPINE [Suspect]
     Indication: SCHIZOPHRENIA SIMPLE
     Dosage: 200-250 MG QD ORAL
     Route: 048
     Dates: start: 20021101

REACTIONS (3)
  - CHOLECYSTITIS INFECTIVE [None]
  - PNEUMONIA [None]
  - POSTOPERATIVE INFECTION [None]
